FAERS Safety Report 6628300-5 (Version None)
Quarter: 2010Q1

REPORT INFORMATION
  Report Type: 
  Country: None (occurrence: None)
  Receive Date: 20100311
  Receipt Date: 20100305
  Transmission Date: 20100710
  Serious: Yes (Hospitalization)
  Sender: FDA-Public Use
  Company Number: DE-ROCHE-659713

PATIENT
  Sex: Female
  Weight: 80 kg

DRUGS (7)
  1. BEVACIZUMAB [Suspect]
     Indication: BREAST CANCER
     Dosage: FORM: INFUSION, DOSE REPORTED AS 15 MG/KG, LAST DOSE PRIOR TO SAE: 10 SEPTEMBER 2009
     Route: 042
     Dates: start: 20090528
  2. TAXOTERE [Suspect]
     Indication: BREAST CANCER
     Route: 065
  3. NIFEHEXAL RETARD [Concomitant]
     Dosage: TOTAL DAILY DOSE REPORTED AS 2 X 10 MG.
  4. ATENOLOL [Concomitant]
     Dosage: TOTAL DAILY DOSE REPORTED AS 2 X 12.5 MG.
  5. EUTHYROX [Concomitant]
     Dosage: TOTAL DAILY DOSE REPORTED AS 1 X 100 MG.
  6. ALLOPURINOL [Concomitant]
     Dosage: TOTAL DAILY DOSE REPORTED AS 1 X 100 MG.
  7. SIMVABETA [Concomitant]
     Dosage: TOTAL DAILY DOSE REPORTED AS 1 X 20 MG.

REACTIONS (1)
  - GASTRITIS [None]
